FAERS Safety Report 4808041-7 (Version None)
Quarter: 2005Q4

REPORT INFORMATION
  Report Type: 
  Country: None (occurrence: None)
  Receive Date: 20051024
  Receipt Date: 20051011
  Transmission Date: 20060501
  Serious: Yes (Hospitalization)
  Sender: FDA-Public Use
  Company Number: AU-MERCK-0510USA07195

PATIENT
  Age: 14 Year
  Sex: Female

DRUGS (3)
  1. DECADRON [Suspect]
     Indication: SYSTEMIC LUPUS ERYTHEMATOSUS
     Route: 065
     Dates: start: 19920608
  2. PREDNISOLONE [Suspect]
     Indication: SYSTEMIC LUPUS ERYTHEMATOSUS
     Route: 048
     Dates: start: 19920201
  3. PREDNISOLONE [Suspect]
     Route: 048
     Dates: end: 19920608

REACTIONS (3)
  - INJURY [None]
  - OSTEOPOROSIS [None]
  - SPINAL FRACTURE [None]
